FAERS Safety Report 5996593-3 (Version None)
Quarter: 2008Q4

REPORT INFORMATION
  Report Type: 
  Country: None (occurrence: None)
  Receive Date: 20081212
  Receipt Date: 20081109
  Transmission Date: 20090506
  Serious: No
  Sender: FDA-Public Use
  Company Number: US-ABBOTT-08P-163-0482959-00

PATIENT
  Sex: Female
  Weight: 81.72 kg

DRUGS (5)
  1. HUMIRA [Suspect]
     Indication: CROHN'S DISEASE
     Route: 058
     Dates: start: 20070501, end: 20080903
  2. HUMIRA [Suspect]
     Route: 058
     Dates: start: 20080916
  3. AZATHIOPRINE [Concomitant]
     Indication: CROHN'S DISEASE
     Route: 048
     Dates: start: 20060101
  4. IMODIUM [Concomitant]
     Indication: CROHN'S DISEASE
     Route: 048
     Dates: start: 20080101
  5. BALSALAZIDE DISODIUM [Concomitant]
     Indication: CROHN'S DISEASE
     Dosage: 3 TABS
     Route: 048
     Dates: start: 20060101

REACTIONS (3)
  - DIARRHOEA [None]
  - FATIGUE [None]
  - MUSCLE SPASMS [None]
